FAERS Safety Report 6783218-2 (Version None)
Quarter: 2010Q2

REPORT INFORMATION
  Report Type: 
  Country: None (occurrence: None)
  Receive Date: 20100622
  Receipt Date: 20100615
  Transmission Date: 20101027
  Serious: Yes (Hospitalization, Other)
  Sender: FDA-Public Use
  Company Number: IT-JNJFOC-20100604989

PATIENT
  Sex: Female

DRUGS (6)
  1. IMODIUM [Suspect]
     Indication: DIARRHOEA
     Dosage: 2 MG TWICE DAILY
     Route: 048
  2. COUMADIN [Interacting]
     Indication: ATRIAL FIBRILLATION
     Route: 048
  3. LUVION [Concomitant]
     Route: 065
  4. ENALAPRIL MALEATE [Concomitant]
     Route: 065
  5. GLICLAZIDE [Concomitant]
     Route: 065
  6. ASPIRIN [Concomitant]
     Route: 065

REACTIONS (2)
  - DRUG INTERACTION [None]
  - INTERNATIONAL NORMALISED RATIO INCREASED [None]
